FAERS Safety Report 20530071 (Version 1)
Quarter: 2022Q1

REPORT INFORMATION
  Report Type: Spontaneous
  Country: FR (occurrence: FR)
  Receive Date: 20220301
  Receipt Date: 20220301
  Transmission Date: 20220423
  Serious: Yes (Hospitalization)
  Sender: FDA-Public Use
  Company Number: FR-SUN PHARMACEUTICAL INDUSTRIES LTD-2022RR-328315

PATIENT
  Age: 51 Year
  Sex: Female
  Weight: 67 kg

DRUGS (10)
  1. SUMATRIPTAN SUCCINATE [Suspect]
     Active Substance: SUMATRIPTAN SUCCINATE
     Indication: Migraine
     Dosage: SUMATRIPTAN SC 6MG/0,5 ML IF NEEDED
     Route: 058
     Dates: start: 20220121, end: 20220121
  2. ALMOTRIPTAN [Suspect]
     Active Substance: ALMOTRIPTAN
     Indication: Migraine
     Dosage: ALMOTRIPTAN VO 12,5 MG IF NEEDED
     Route: 048
     Dates: start: 20220120, end: 20220120
  3. ALPRAZOLAM [Concomitant]
     Active Substance: ALPRAZOLAM
     Indication: Mixed anxiety and depressive disorder
     Dosage: 0 - 0 - 0,25 MG
     Route: 048
  4. PROPRANOLOL [Concomitant]
     Active Substance: PROPRANOLOL HYDROCHLORIDE
     Indication: Hypertension
     Dosage: 40 - 0 - 40 MG
     Route: 048
  5. KETOPROFEN [Concomitant]
     Active Substance: KETOPROFEN
     Indication: Pain
     Dosage: KETOPROFEN LP 100 - 0 - 100 MG
     Route: 048
  6. MONTELUKAST [Concomitant]
     Active Substance: MONTELUKAST SODIUM
     Indication: Hypersensitivity
     Dosage: 0 - 0 - 10 MG
     Route: 048
  7. DICHLORHYDRATE DE LEVOCETIRIZINE [Concomitant]
     Indication: Hypersensitivity
     Dosage: 0 - 0 - 5 MG
     Route: 048
  8. ACETAMINOPHEN [Concomitant]
     Active Substance: ACETAMINOPHEN
     Indication: Pain
     Dosage: 0 - 0 - 1000 MG
     Route: 048
  9. MILNACIPRAN [Concomitant]
     Active Substance: MILNACIPRAN
     Indication: Mixed anxiety and depressive disorder
     Dosage: 50 - 0 - 0 MG
     Route: 048
  10. ESOMEPRAZOLE [Concomitant]
     Active Substance: ESOMEPRAZOLE
     Indication: Gastrooesophageal reflux disease
     Dosage: 0 - 0 - 20 MG
     Route: 048

REACTIONS (1)
  - Acute coronary syndrome [Recovered/Resolved]

NARRATIVE: CASE EVENT DATE: 20220121
